FAERS Safety Report 4901162-X (Version None)
Quarter: 2006Q1

REPORT INFORMATION
  Report Type: 
  Country: None (occurrence: None)
  Receive Date: 20060201
  Receipt Date: 20060120
  Transmission Date: 20060701
  Serious: Yes (Other)
  Sender: FDA-Public Use
  Company Number: 2006-01-1439

PATIENT
  Age: 82 Year
  Sex: Male

DRUGS (1)
  1. PROVENTIL-HFA [Suspect]
     Dosage: ORAL AER INH
     Route: 048

REACTIONS (7)
  - DRUG INEFFECTIVE [None]
  - HIP FRACTURE [None]
  - MEDICATION ERROR [None]
  - MUSCLE SPASMS [None]
  - PHARMACEUTICAL PRODUCT COMPLAINT [None]
  - TREATMENT NONCOMPLIANCE [None]
  - WRONG TECHNIQUE IN DRUG USAGE PROCESS [None]
